FAERS Safety Report 4608533-X (Version None)
Quarter: 2005Q1

REPORT INFORMATION
  Report Type: 
  Country: None (occurrence: None)
  Receive Date: 20050311
  Receipt Date: 20050311
  Transmission Date: 20050727
  Serious: Yes (Disabling)
  Sender: FDA-Public Use
  Company Number: None

PATIENT
  Age: 47 Year
  Sex: Female
  Weight: 67.586 kg

DRUGS (2)
  1. GEODON [Suspect]
     Indication: BIPOLAR DISORDER
     Dosage: 80MG  2XDAILY   ORAL
     Route: 048
     Dates: start: 20000315, end: 20040322
  2. GEODON [Suspect]
     Indication: MANIA
     Dosage: 80MG  2XDAILY   ORAL
     Route: 048
     Dates: start: 20000315, end: 20040322

REACTIONS (10)
  - AKATHISIA [None]
  - CONDITION AGGRAVATED [None]
  - DYSKINESIA [None]
  - DYSPHAGIA [None]
  - DYSTONIA [None]
  - MANIA [None]
  - MUSCLE SPASMS [None]
  - TARDIVE DYSKINESIA [None]
  - TOOTH DISORDER [None]
  - TRISMUS [None]
